FAERS Safety Report 8343865-3 (Version None)
Quarter: 2012Q2

REPORT INFORMATION
  Report Type: 
  Country: None (occurrence: None)
  Receive Date: 20120503
  Receipt Date: 20120424
  Transmission Date: 20120825
  Serious: Yes (Other)
  Sender: FDA-Public Use
  Company Number: 2012SP022478

PATIENT

DRUGS (4)
  1. TEMOZOLOMIDE [Suspect]
     Indication: GLIOBLASTOMA
     Dosage: 200 MG/M2;QD
  2. TEMOZOLOMIDE [Suspect]
     Indication: NEOPLASM RECURRENCE
     Dosage: 200 MG/M2;QD
  3. ENZASTAURIN (ENZASTAURIN) [Suspect]
     Indication: NEOPLASM RECURRENCE
     Dosage: 250 MG;QD ; 250 MG;BID ; 500 MG;QD
  4. ENZASTAURIN (ENZASTAURIN) [Suspect]
     Indication: GLIOBLASTOMA
     Dosage: 250 MG;QD ; 250 MG;BID ; 500 MG;QD

REACTIONS (3)
  - INTRACRANIAL PRESSURE INCREASED [None]
  - GLIOBLASTOMA [None]
  - DISEASE PROGRESSION [None]
